FAERS Safety Report 10250636 (Version 2)
Quarter: 2014Q2

REPORT INFORMATION
  Report Type: Spontaneous
  Country: US (occurrence: US)
  Receive Date: 20140620
  Receipt Date: 20140620
  Transmission Date: 20141212
  Serious: Yes (Hospitalization)
  Sender: FDA-Public Use
  Company Number: US-ASTRAZENECA-2010SE34955

PATIENT
  Age: 57 Year
  Sex: Female

DRUGS (4)
  1. NEXIUM [Suspect]
     Route: 048
  2. NEXIUM [Suspect]
     Route: 048
  3. NEXIUM [Suspect]
     Route: 048
  4. KOLONEGEN [Concomitant]

REACTIONS (6)
  - Malaise [Unknown]
  - Dyspepsia [Unknown]
  - Aphagia [Unknown]
  - Mental disorder [Unknown]
  - Drug dose omission [Unknown]
  - Off label use [Unknown]
